FAERS Safety Report 7878867-4 (Version None)
Quarter: 2011Q4

REPORT INFORMATION
  Report Type: 
  Country: None (occurrence: None)
  Receive Date: 20111021
  Receipt Date: 20110520
  Transmission Date: 20120403
  Serious: Yes (Other)
  Sender: FDA-Public Use
  Company Number: 2011SP023689

PATIENT
  Sex: Female

DRUGS (1)
  1. TEMODAR [Suspect]
     Indication: GLIOBLASTOMA
     Dates: end: 20100801

REACTIONS (4)
  - DISEASE PROGRESSION [None]
  - CONFUSIONAL STATE [None]
  - AMNESIA [None]
  - BALANCE DISORDER [None]
